FAERS Safety Report 21663042 (Version 1)
Quarter: 2022Q4

REPORT INFORMATION
  Report Type: Report from Study
  Country: US (occurrence: US)
  Receive Date: 20221130
  Receipt Date: 20221130
  Transmission Date: 20230113
  Serious: No
  Sender: FDA-Public Use
  Company Number: US-ABBVIE-4209061

PATIENT
  Sex: Male

DRUGS (1)
  1. HUMIRA [Suspect]
     Active Substance: ADALIMUMAB
     Indication: Prostatic specific antigen
     Route: 058

REACTIONS (2)
  - Injection site haemorrhage [Recovering/Resolving]
  - Therapeutic product effect decreased [Unknown]
